FAERS Safety Report 26129582 (Version 2)
Quarter: 2025Q4

REPORT INFORMATION
  Report Type: Spontaneous
  Country: EU (occurrence: EU)
  Receive Date: 20251208
  Receipt Date: 20251211
  Transmission Date: 20260117
  Serious: Yes (Hospitalization, Other)
  Sender: JOHNSON AND JOHNSON
  Company Number: EU-JNJFOC-20251200006

PATIENT
  Age: 22 Year
  Sex: Female

DRUGS (2)
  1. SIMPONI [Suspect]
     Active Substance: GOLIMUMAB
     Indication: Inflammation
  2. SIMPONI [Suspect]
     Active Substance: GOLIMUMAB
     Indication: Fistula

REACTIONS (16)
  - Depersonalisation/derealisation disorder [Unknown]
  - Panic attack [Unknown]
  - Depression [Unknown]
  - Delusion [Unknown]
  - Intestinal obstruction [Unknown]
  - Tachyphrenia [Unknown]
  - Tuberculosis [Unknown]
  - Gastrointestinal surgery [Unknown]
  - Dyspnoea [Unknown]
  - Overdose [Unknown]
  - Tooth discolouration [Unknown]
  - Tooth disorder [Unknown]
  - Skin exfoliation [Unknown]
  - Insomnia [Unknown]
  - Off label use [Unknown]
  - Incorrect product administration duration [Unknown]

NARRATIVE: CASE EVENT DATE: 20150501
